FAERS Safety Report 5286640-9 (Version None)
Quarter: 2007Q2

REPORT INFORMATION
  Report Type: 
  Country: None (occurrence: None)
  Receive Date: 20070404
  Receipt Date: 20070330
  Transmission Date: 20071010
  Serious: Yes (Death, Life-Threatening)
  Sender: FDA-Public Use
  Company Number: FR-GLAXOSMITHKLINE-B0464517A

PATIENT
  Age: 81 Year
  Sex: Male

DRUGS (7)
  1. VENTOLIN [Suspect]
     Dosage: 5MG THREE TIMES PER DAY
     Route: 055
     Dates: start: 20070317, end: 20070320
  2. AUGMENTIN '125' [Suspect]
     Dosage: 3G PER DAY
     Route: 042
     Dates: start: 20070317, end: 20070320
  3. EUPRESSYL [Suspect]
     Route: 042
     Dates: start: 20070317, end: 20070320
  4. LOVENOX [Suspect]
     Dosage: 40MG PER DAY
     Route: 058
     Dates: start: 20070317, end: 20070320
  5. LASIX [Suspect]
     Dosage: 40MG PER DAY
     Route: 042
     Dates: start: 20070317, end: 20070320
  6. DIGOXIN [Suspect]
     Dosage: .25MG THREE TIMES PER DAY
     Route: 042
     Dates: start: 20070317, end: 20070320
  7. OXYGEN [Concomitant]
     Dates: start: 20070317, end: 20070320

REACTIONS (3)
  - COMA [None]
  - DEATH [None]
  - NERVOUS SYSTEM DISORDER [None]
